FAERS Safety Report 17345627 (Version 1)
Quarter: 2020Q1

REPORT INFORMATION
  Report Type: Spontaneous
  Country: DE (occurrence: DE)
  Receive Date: 20200129
  Receipt Date: 20200129
  Transmission Date: 20200409
  Serious: Yes (Other)
  Sender: FDA-Public Use
  Company Number: DE-TEVA-2020-DE-1175191

PATIENT
  Age: 64 Year
  Sex: Female
  Weight: 30 kg

DRUGS (2)
  1. AMITRIPTYLINE [Concomitant]
     Active Substance: AMITRIPTYLINE
     Route: 065
  2. FENTANYL. [Suspect]
     Active Substance: FENTANYL
     Dosage: 2 PATCHES; 75 UG/H (TOTAL: 150 UG/H)
     Route: 062

REACTIONS (2)
  - Toxicity to various agents [Unknown]
  - Urinary retention [Unknown]
